FAERS Safety Report 5615438-4 (Version None)
Quarter: 2008Q1

REPORT INFORMATION
  Report Type: 
  Country: None (occurrence: None)
  Receive Date: 20080131
  Receipt Date: 20080121
  Transmission Date: 20080703
  Serious: Yes (Hospitalization)
  Sender: FDA-Public Use
  Company Number: GXKR2008JP01001

PATIENT
  Age: 37 Year
  Sex: Female

DRUGS (8)
  1. AMOXAPINE [Suspect]
     Indication: BIPOLAR I DISORDER
     Dosage: 2.5 MG, QD, 25 MG, QD, 75 MG, QD
  2. AMOXAPINE [Suspect]
     Indication: BIPOLAR I DISORDER
     Dosage: 2.5 MG, QD, 25 MG, QD, 75 MG, QD
  3. AMOXAPINE [Suspect]
     Indication: BIPOLAR I DISORDER
     Dosage: 2.5 MG, QD, 25 MG, QD, 75 MG, QD
  4. LORAZEPAM [Concomitant]
  5. TRAZODONE HCL [Concomitant]
  6. PAROXETINE HCL [Concomitant]
  7. FUROSEMIDE [Concomitant]
  8. SULBACTAM (SULBACTAM) [Concomitant]

REACTIONS (15)
  - ACUTE RESPIRATORY DISTRESS SYNDROME [None]
  - ALANINE AMINOTRANSFERASE INCREASED [None]
  - ALCOHOL USE [None]
  - ANAEMIA [None]
  - ASPARTATE AMINOTRANSFERASE INCREASED [None]
  - GAMMA-GLUTAMYLTRANSFERASE INCREASED [None]
  - LUNG INFILTRATION [None]
  - LYMPHOCYTOSIS [None]
  - NEUTROPHILIA [None]
  - PERICARDIAL EFFUSION [None]
  - PLEURAL EFFUSION [None]
  - PROTEIN TOTAL DECREASED [None]
  - PULMONARY HYPERTENSION [None]
  - PYREXIA [None]
  - SUICIDE ATTEMPT [None]
